FAERS Safety Report 11387932 (Version 3)
Quarter: 2015Q3

REPORT INFORMATION
  Report Type: Spontaneous
  Country: ES (occurrence: ES)
  Receive Date: 20150817
  Receipt Date: 20150818
  Transmission Date: 20151125
  Serious: Yes (Death, Disabling)
  Sender: FDA-Public Use
  Company Number: ES-CELGENE-ESP-2015072608

PATIENT
  Age: 63 Year
  Sex: Male

DRUGS (3)
  1. GEMCITABINE [Concomitant]
     Active Substance: GEMCITABINE\GEMCITABINE HYDROCHLORIDE
     Indication: PANCREATIC CARCINOMA METASTATIC
     Route: 065
  2. GEMCITABINE [Concomitant]
     Active Substance: GEMCITABINE\GEMCITABINE HYDROCHLORIDE
     Indication: PANCREATIC CARCINOMA
     Route: 065
     Dates: start: 201401
  3. ABRAXANE [Suspect]
     Active Substance: PACLITAXEL
     Indication: PANCREATIC CARCINOMA METASTATIC
     Route: 041
     Dates: start: 201401

REACTIONS (2)
  - Pancreatic carcinoma metastatic [Fatal]
  - Neurotoxicity [Recovering/Resolving]

NARRATIVE: CASE EVENT DATE: 201406
